FAERS Safety Report 4449931-7 (Version None)
Quarter: 2004Q3

REPORT INFORMATION
  Report Type: 
  Country: None (occurrence: None)
  Receive Date: 20040915
  Receipt Date: 20040722
  Transmission Date: 20050211
  Serious: Yes (Other)
  Sender: FDA-Public Use
  Company Number: FR-GLAXOSMITHKLINE-B0339987A

PATIENT
  Age: 78 Year
  Sex: Male
  Weight: 80 kg

DRUGS (3)
  1. AVODART [Suspect]
     Indication: BENIGN PROSTATIC HYPERPLASIA
     Dosage: .5MG PER DAY
     Route: 048
     Dates: start: 20040501, end: 20040801
  2. TENORDATE [Concomitant]
     Dosage: 1UNIT PER DAY
     Route: 048
     Dates: start: 19940101
  3. ASPEGIC 325 [Concomitant]
     Dosage: 250MG PER DAY
     Route: 048

REACTIONS (3)
  - BREAST DISCOMFORT [None]
  - CONSTIPATION [None]
  - LIBIDO DISORDER [None]
